FAERS Safety Report 7949038 (Version 4)
Quarter: 2014Q1

REPORT INFORMATION
  Report Type: Spontaneous
  Country: US (occurrence: US)
  Receive Date: 20110517
  Receipt Date: 20140203
  Transmission Date: 20141002
  Serious: Yes (Death, Hospitalization)
  Sender: FDA-Public Use
  Company Number: US-B.I. PHARMACEUTICALS,INC./RIDGEFIELD-2011-BP-13055BP

PATIENT
  Age: 75 Year
  Sex: Female
  Weight: 61.23 kg

DRUGS (5)
  1. PRADAXA [Suspect]
     Indication: ATRIAL FIBRILLATION
     Dosage: 300 MG
     Dates: start: 20101203, end: 20110501
  2. ZOLOFT [Concomitant]
     Dosage: 50 MG
  3. OMEPRAZOLE [Concomitant]
     Dosage: 20 MG
  4. XANAX [Concomitant]
  5. SIMVASTATIN [Concomitant]
     Indication: BLOOD CHOLESTEROL INCREASED

REACTIONS (1)
  - Haemorrhage intracranial [Fatal]
